FAERS Safety Report 21417170 (Version 1)
Quarter: 2022Q4

REPORT INFORMATION
  Report Type: Spontaneous
  Country: GB (occurrence: GB)
  Receive Date: 20221006
  Receipt Date: 20221006
  Transmission Date: 20230112
  Serious: Yes (Other)
  Sender: FDA-Public Use
  Company Number: GB-MHRA-MED-202210011612505570-HYSNV

PATIENT
  Age: 63 Year
  Sex: Female
  Weight: 50 kg

DRUGS (1)
  1. LEVOFLOXACIN [Suspect]
     Active Substance: LEVOFLOXACIN
     Indication: Abscess
     Dosage: UNK
     Route: 042
     Dates: end: 20220928

REACTIONS (2)
  - Joint stiffness [Unknown]
  - Arthralgia [Not Recovered/Not Resolved]
